FAERS Safety Report 7898803-4 (Version None)
Quarter: 2011Q4

REPORT INFORMATION
  Report Type: 
  Country: None (occurrence: None)
  Receive Date: 20111103
  Receipt Date: 20111020
  Transmission Date: 20120403
  Serious: Yes (Other)
  Sender: FDA-Public Use
  Company Number: 2011MA008016

PATIENT
  Age: 44 Year
  Sex: Male

DRUGS (6)
  1. FERROUS SULFATE TAB [Concomitant]
  2. HYOSCINE HYDROBROMIDE [Concomitant]
  3. HYOSCINE HBR HYT [Suspect]
     Indication: IRRITABLE BOWEL SYNDROME
     Dosage: 10 MG;OD;PO
     Dates: end: 20110520
  4. CLOZARIL [Suspect]
     Indication: SCHIZOPHRENIA
     Dosage: 400 MG;OD;PO
     Route: 048
     Dates: start: 20100809, end: 20110520
  5. SERTRALINE HYDROCHLORIDE [Concomitant]
  6. RISPERIDONE [Suspect]

REACTIONS (10)
  - NEUTROPENIA [None]
  - SEASONAL ALLERGY [None]
  - VOMITING [None]
  - IRON DEFICIENCY ANAEMIA [None]
  - WHITE BLOOD CELL COUNT DECREASED [None]
  - GENERAL PHYSICAL HEALTH DETERIORATION [None]
  - DIZZINESS [None]
  - SALIVARY HYPERSECRETION [None]
  - WEIGHT DECREASED [None]
  - MICROCYTIC ANAEMIA [None]
